FAERS Safety Report 5579199-X (Version None)
Quarter: 2008Q1

REPORT INFORMATION
  Report Type: 
  Country: None (occurrence: None)
  Receive Date: 20080102
  Receipt Date: 20071221
  Transmission Date: 20080703
  Serious: Yes (Life-Threatening)
  Sender: FDA-Public Use
  Company Number: B0499727A

PATIENT
  Age: 54 Year
  Sex: Female
  Weight: 54 kg

DRUGS (4)
  1. ARIXTRA [Suspect]
     Indication: THROMBOSIS PROPHYLAXIS
     Dosage: 2.5MG PER DAY
     Route: 058
     Dates: start: 20071208, end: 20071208
  2. CEPHALOSPORIN [Concomitant]
     Indication: INFECTION PROPHYLAXIS
     Dosage: 2G PER DAY
     Route: 042
     Dates: start: 20071207
  3. LOXONIN [Concomitant]
     Indication: PAIN
     Dosage: 180MG PER DAY
     Route: 048
     Dates: start: 20071208
  4. UNKNOWN MEDICATION [Concomitant]
     Indication: GASTRITIS
     Dosage: 300MG PER DAY
     Route: 048
     Dates: start: 20071208

REACTIONS (8)
  - BLOOD PRESSURE DECREASED [None]
  - HAEMOGLOBIN DECREASED [None]
  - NAUSEA [None]
  - SHOCK HAEMORRHAGIC [None]
  - SWELLING [None]
  - TACHYCARDIA [None]
  - VOMITING [None]
  - WOUND COMPLICATION [None]
